FAERS Safety Report 19956195 (Version 1)
Quarter: 2021Q4

REPORT INFORMATION
  Report Type: Spontaneous
  Country: PT (occurrence: PT)
  Receive Date: 20211014
  Receipt Date: 20211014
  Transmission Date: 20220303
  Serious: Yes (Other)
  Sender: FDA-Public Use
  Company Number: PT-EXELA PHARMA SCIENCES, LLC-2021EXL00031

PATIENT
  Age: 26 Year
  Sex: Female

DRUGS (1)
  1. PHENYLEPHRINE [Suspect]
     Active Substance: PHENYLEPHRINE HYDROCHLORIDE
     Dosage: 2 MG, ONCE INADVERTENTLY DUE TO A DILUTION ERROR
     Route: 065

REACTIONS (6)
  - Pulmonary oedema [Recovered/Resolved]
  - Medication error [Recovered/Resolved]
  - Hypotension [Recovered/Resolved]
  - Bradycardia [Recovered/Resolved]
  - Sinus tachycardia [Recovered/Resolved]
  - Hypoxia [Recovered/Resolved]
